FAERS Safety Report 7268214-3 (Version None)
Quarter: 2011Q1

REPORT INFORMATION
  Report Type: 
  Country: None (occurrence: None)
  Receive Date: 20110201
  Receipt Date: 20110126
  Transmission Date: 20110831
  Serious: Yes (Other)
  Sender: FDA-Public Use
  Company Number: PHHO2011DE01936

PATIENT
  Sex: Male
  Weight: 79 kg

DRUGS (2)
  1. AMN107 [Suspect]
     Indication: CHRONIC MYELOID LEUKAEMIA
     Dosage: 300 MG, BID
     Route: 048
     Dates: start: 20101103
  2. AMLODIPINE [Concomitant]
     Indication: HYPERTENSION

REACTIONS (1)
  - ELECTROCARDIOGRAM QT PROLONGED [None]
